FAERS Safety Report 9711782 (Version 2)
Quarter: 2013Q4

REPORT INFORMATION
  Report Type: Spontaneous
  Country: US (occurrence: US)
  Receive Date: 20131126
  Receipt Date: 20131126
  Transmission Date: 20140711
  Serious: No
  Sender: FDA-Public Use
  Company Number: US-BRISTOL-MYERS SQUIBB COMPANY-18818054

PATIENT
  Age: 51 Year
  Sex: Female
  Weight: 108.84 kg

DRUGS (2)
  1. BYDUREON [Suspect]
     Dates: start: 20130417
  2. METFORMIN [Concomitant]
     Route: 048

REACTIONS (2)
  - Musculoskeletal stiffness [Recovered/Resolved]
  - Pain [Not Recovered/Not Resolved]
